FAERS Safety Report 8610919-3 (Version None)
Quarter: 2012Q3

REPORT INFORMATION
  Report Type: 
  Country: None (occurrence: None)
  Receive Date: 20120822
  Receipt Date: 20120816
  Transmission Date: 20120928
  Serious: Yes (Other)
  Sender: FDA-Public Use
  Company Number: AU-AMGEN-AUSSP2012051394

PATIENT
  Age: 44 Year
  Sex: Female

DRUGS (3)
  1. DOXORUBICIN HCL [Concomitant]
     Indication: BREAST CANCER METASTATIC
     Dosage: UNK
     Dates: start: 20120810
  2. XGEVA [Suspect]
     Indication: BREAST CANCER METASTATIC
     Dosage: UNK
  3. CYCLOPHOSPHAMIDE [Concomitant]
     Indication: BREAST CANCER METASTATIC
     Dosage: UNK
     Dates: start: 20120810

REACTIONS (6)
  - HYPOAESTHESIA [None]
  - RESPIRATORY DISORDER [None]
  - OSTEOMYELITIS [None]
  - SWELLING FACE [None]
  - TOOTH INFECTION [None]
  - PAIN IN JAW [None]
